FAERS Safety Report 10597904 (Version 1)
Quarter: 2014Q4

REPORT INFORMATION
  Report Type: Spontaneous
  Country: US (occurrence: US)
  Receive Date: 20141121
  Receipt Date: 20141121
  Transmission Date: 20150529
  Serious: No
  Sender: FDA-Public Use
  Company Number: US-009507513-1411USA001713

PATIENT

DRUGS (3)
  1. PEGINTRON [Suspect]
     Active Substance: PEGINTERFERON ALFA-2B
     Indication: HEPATITIS C
     Dosage: UNK
  2. SOVALDI [Suspect]
     Active Substance: SOFOSBUVIR
  3. REBETOL [Suspect]
     Active Substance: RIBAVIRIN

REACTIONS (1)
  - Ageusia [Not Recovered/Not Resolved]
